FAERS Safety Report 5377724-5 (Version None)
Quarter: 2007Q3

REPORT INFORMATION
  Report Type: 
  Country: None (occurrence: None)
  Receive Date: 20070703
  Receipt Date: 20070627
  Transmission Date: 20080115
  Serious: Yes (Hospitalization)
  Sender: FDA-Public Use
  Company Number: CA-BOEHRINGER INGELHEIM PHARMACEUTICALS, INC.-2007-CN-00533CN

PATIENT
  Sex: Female

DRUGS (3)
  1. MICARDIS [Suspect]
  2. ZOLOFT [Concomitant]
     Indication: MAJOR DEPRESSION
     Dates: start: 20010101
  3. HYDRODIURIL [Concomitant]

REACTIONS (1)
  - OESOPHAGEAL SPASM [None]
